FAERS Safety Report 5845139-9 (Version None)
Quarter: 2008Q3

REPORT INFORMATION
  Report Type: 
  Country: None (occurrence: None)
  Receive Date: 20080814
  Receipt Date: 20080731
  Transmission Date: 20090109
  Serious: Yes (Hospitalization)
  Sender: FDA-Public Use
  Company Number: A0545313A

PATIENT
  Age: 53 Year
  Sex: Female
  Weight: 82.2 kg

DRUGS (4)
  1. TOSITUMOMAB [Suspect]
     Indication: NON-HODGKIN'S LYMPHOMA
     Route: 042
     Dates: start: 20000303, end: 20000303
  2. IODINE I 131 TOSITUMOMAB [Suspect]
     Indication: NON-HODGKIN'S LYMPHOMA
     Route: 042
     Dates: start: 20000303, end: 20000303
  3. TOSITUMOMAB [Suspect]
     Route: 042
     Dates: start: 20000310, end: 20000310
  4. IODINE I 131 TOSITUMOMAB [Suspect]
     Route: 042
     Dates: start: 19990409, end: 19990409

REACTIONS (2)
  - PYREXIA [None]
  - RADICULITIS BRACHIAL [None]
